FAERS Safety Report 22154227 (Version 1)
Quarter: 2023Q1

REPORT INFORMATION
  Report Type: Spontaneous
  Country: AU (occurrence: AU)
  Receive Date: 20230330
  Receipt Date: 20230330
  Transmission Date: 20230418
  Serious: Yes (Death, Hospitalization, Other)
  Sender: FDA-Public Use
  Company Number: AU-AMGEN-AUSSP2023052175

PATIENT

DRUGS (5)
  1. FILGRASTIM [Suspect]
     Active Substance: FILGRASTIM
     Indication: Autologous haematopoietic stem cell transplant
     Dosage: 5 TO 10 MICROGRAM/KILOGRAM (KG) DAILY FROM DAY 05 TO 12 EACH CYCLE AFTER THE FIRST OR SECOND CYCLE
     Route: 065
  2. ETOPOSIDE [Concomitant]
     Active Substance: ETOPOSIDE
     Dosage: 200 MILLIGRAM/SQ. METER, QD FROM DAYS 1 TO 3
  3. IFOSFAMIDE [Concomitant]
     Active Substance: IFOSFAMIDE
     Dosage: 10000 MILLIGRAM/SQ. METER OVER 48 HOURS ON DAY 2
  4. CARBOPLATIN [Concomitant]
     Active Substance: CARBOPLATIN
     Dosage: 800 MILLIGRAM ON DAY 02
  5. MESNA [Concomitant]
     Active Substance: MESNA
     Dosage: 10000 MILLIGRAM/SQ. METER OVER 48 HOURS ON DAY 02

REACTIONS (9)
  - Death [Fatal]
  - Diffuse large B-cell lymphoma recurrent [Fatal]
  - Unevaluable event [Unknown]
  - Febrile neutropenia [Unknown]
  - Hodgkin^s disease [Unknown]
  - Red blood cell transfusion [Unknown]
  - Platelet transfusion [Unknown]
  - Hypoalbuminaemia [Unknown]
  - Blood disorder [Unknown]
